FAERS Safety Report 23936290 (Version 1)
Quarter: 2024Q2

REPORT INFORMATION
  Report Type: Spontaneous
  Country: IT (occurrence: IT)
  Receive Date: 20240604
  Receipt Date: 20240604
  Transmission Date: 20240716
  Serious: Yes (Other)
  Sender: FDA-Public Use
  Company Number: None

PATIENT
  Age: 60 Year
  Sex: Male
  Weight: 74 kg

DRUGS (9)
  1. OXALIPLATIN [Suspect]
     Active Substance: OXALIPLATIN
     Indication: Rectal adenocarcinoma
     Dosage: 230 MG Q3W
  2. DEXAMETHASONE [Concomitant]
     Active Substance: DEXAMETHASONE
     Indication: Vomiting
     Dosage: 8 MG IN 100 ML OF PHYSIOLOGICAL SALINE SOLUTION Q3W
  3. Zofenopril Calcium, Hydrochlorothiazide [Concomitant]
     Indication: Hypertension
     Dosage: 30 MG/12.5 MG DAY
  4. PREDNISONE [Concomitant]
     Active Substance: PREDNISONE
     Indication: Chemotherapy cytokine prophylaxis
     Dosage: 5 MG 2 TIMES A DAY IN THE 2 DAYS BEFORE CHEMOTHERAPY
  5. METOCLOPRAMIDE HYDROCHLORIDE [Concomitant]
     Active Substance: METOCLOPRAMIDE HYDROCHLORIDE
     Indication: Vomiting
     Dosage: 10 MG AS REQUIRED
  6. LANSOPRAZOLE [Concomitant]
     Active Substance: LANSOPRAZOLE
     Indication: Prophylaxis
     Dosage: 30 MG DAY
  7. CAPECITABINE [Concomitant]
     Active Substance: CAPECITABINE
     Indication: Rectal adenocarcinoma
     Dosage: 500 MG X 3 MORNING AND EVENING FOR 14 DAYS FOLLOWED BY A 7 DAY BREAK
  8. BEVACIZUMAB [Concomitant]
     Active Substance: BEVACIZUMAB
     Dosage: 555 MG Q3W
     Dates: start: 20230911
  9. ONDANSETRON [Concomitant]
     Active Substance: ONDANSETRON
     Indication: Vomiting
     Dosage: 8 MG AS REQUIRED

REACTIONS (4)
  - Presyncope [Recovered/Resolved]
  - Paraesthesia [Recovered/Resolved]
  - Paraesthesia oral [Recovered/Resolved]
  - Respiratory fatigue [Recovered/Resolved]

NARRATIVE: CASE EVENT DATE: 20231002
